FAERS Safety Report 9058467 (Version 1)
Quarter: 2013Q1

REPORT INFORMATION
  Report Type: Report from Study
  Country: US (occurrence: US)
  Receive Date: 20130211
  Receipt Date: 20130211
  Transmission Date: 20140127
  Serious: Yes (Hospitalization)
  Sender: FDA-Public Use
  Company Number: US-ACTELION-A-NJ2012-71777

PATIENT
  Age: 61 Year
  Sex: Female

DRUGS (3)
  1. VENTAVIS [Suspect]
     Indication: PORTOPULMONARY HYPERTENSION
     Dosage: UNK
     Route: 055
  2. LETAIRIS [Suspect]
     Dosage: UNK
     Route: 048
     Dates: start: 20081124
  3. ADCIRCA [Concomitant]

REACTIONS (5)
  - Localised infection [Unknown]
  - Pain in extremity [Unknown]
  - Pruritus [Unknown]
  - Neuropathy peripheral [Unknown]
  - Nausea [Unknown]
